FAERS Safety Report 8781184 (Version 1)
Quarter: 2012Q4

REPORT INFORMATION
  Report Type: 
  Country: US (occurrence: US)
  Receive Date: 20120913
  Receipt Date: 20120913
  Transmission Date: 20130627
  Serious: Yes (Other)
  Sender: FDA-Public Use
  Company Number: US-ROCHE-1120995

PATIENT
  Sex: Male

DRUGS (3)
  1. TARCEVA [Suspect]
     Indication: PANCREATIC CARCINOMA
     Route: 065
     Dates: end: 20050623
  2. XELODA [Suspect]
     Indication: PANCREATIC CARCINOMA
     Route: 065
  3. GEMZAR [Concomitant]

REACTIONS (4)
  - Metastasis [Unknown]
  - Disease progression [Unknown]
  - Pain [Unknown]
  - Malaise [Unknown]
